FAERS Safety Report 4747112-0 (Version None)
Quarter: 2005Q3

REPORT INFORMATION
  Report Type: 
  Country: None (occurrence: None)
  Receive Date: 20050815
  Receipt Date: 20050805
  Transmission Date: 20060218
  Serious: Yes (Disabling, Other)
  Sender: FDA-Public Use
  Company Number: 200511157BWH

PATIENT
  Age: 50 Year
  Sex: Male
  Weight: 92.9874 kg

DRUGS (8)
  1. LEVITRA [Suspect]
     Indication: ERECTILE DYSFUNCTION
     Dosage: 10  MG, TOTAL DAILY, ORAL
     Route: 048
     Dates: start: 20040501
  2. LEVITRA [Suspect]
     Indication: ERECTILE DYSFUNCTION
     Dosage: 10  MG, TOTAL DAILY, ORAL
     Route: 048
     Dates: start: 20050501
  3. LIPITOR [Concomitant]
  4. PLAVIX [Concomitant]
  5. ATENOLOL [Concomitant]
  6. ACCUPRIL [Concomitant]
  7. ASPIRIN [Concomitant]
  8. FOLIC ACID [Concomitant]

REACTIONS (7)
  - CATARACT NUCLEAR [None]
  - CYST [None]
  - OPTIC ATROPHY [None]
  - OPTIC ISCHAEMIC NEUROPATHY [None]
  - OPTIC NEURITIS [None]
  - PAPILLOEDEMA [None]
  - TELANGIECTASIA [None]
